FAERS Safety Report 5022647-4 (Version None)
Quarter: 2006Q2

REPORT INFORMATION
  Report Type: 
  Country: None (occurrence: None)
  Receive Date: 20060605
  Receipt Date: 20060523
  Transmission Date: 20061013
  Serious: Yes (Hospitalization)
  Sender: FDA-Public Use
  Company Number: IT200604004405

PATIENT
  Age: 50 Year
  Sex: Female
  Weight: 48 kg

DRUGS (2)
  1. CYMBALTA [Suspect]
     Indication: DEPRESSION
     Dosage: 60 MG DAILY (1/D), ORAL
     Route: 048
     Dates: start: 20060410, end: 20060411
  2. ESTALIS SEQUI (ESTRADIOL, NORETHISTERONE ACETATE) [Concomitant]

REACTIONS (6)
  - MUSCULOSKELETAL STIFFNESS [None]
  - NAUSEA [None]
  - PARAESTHESIA [None]
  - TETANY [None]
  - VERTIGO [None]
  - VOMITING [None]
